FAERS Safety Report 7100110-4 (Version None)
Quarter: 2010Q4

REPORT INFORMATION
  Report Type: 
  Country: None (occurrence: None)
  Receive Date: 20101112
  Receipt Date: 20100119
  Transmission Date: 20110411
  Serious: Yes (Other)
  Sender: FDA-Public Use
  Company Number: A0840286A

PATIENT
  Age: 71 Year
  Sex: Female

DRUGS (5)
  1. COREG [Suspect]
     Dosage: 5MG TWICE PER DAY
     Route: 048
     Dates: start: 20070101, end: 20070101
  2. THYROID MEDICATION [Concomitant]
  3. LIPITOR [Concomitant]
  4. ASTHMA MEDICATION [Concomitant]
  5. ARTHRITIS MEDICATION [Concomitant]

REACTIONS (3)
  - BLOOD PRESSURE DECREASED [None]
  - DIZZINESS [None]
  - SYNCOPE [None]
